FAERS Safety Report 6368312-2 (Version None)
Quarter: 2009Q3

REPORT INFORMATION
  Report Type: 
  Country: None (occurrence: None)
  Receive Date: 20090922
  Receipt Date: 20090911
  Transmission Date: 20100115
  Serious: Yes (Other)
  Sender: FDA-Public Use
  Company Number: US-NOVOPROD-291662

PATIENT
  Age: 67 Year
  Sex: Male

DRUGS (6)
  1. NOVOLIN N [Suspect]
     Indication: TYPE 2 DIABETES MELLITUS
     Dosage: 40 U, BID
     Route: 058
     Dates: start: 20080101
  2. NOVOLOG [Suspect]
     Indication: TYPE 2 DIABETES MELLITUS
     Dosage: 10 UNITS WITH MEALS
     Route: 058
     Dates: start: 20080101
  3. METOPROLOL TARTRATE [Concomitant]
     Indication: HEART RATE INCREASED
     Dates: start: 20060101
  4. METFORMIN HCL [Concomitant]
     Indication: TYPE 2 DIABETES MELLITUS
  5. CIPRO                              /00697201/ [Concomitant]
     Indication: PROSTATITIS
  6. UROCTAL                            /00668101/ [Concomitant]
     Indication: PROSTATITIS

REACTIONS (1)
  - CARDIAC FAILURE CONGESTIVE [None]
